FAERS Safety Report 8852722 (Version 2)
Quarter: 2012Q4

REPORT INFORMATION
  Report Type: 
  Country: US (occurrence: US)
  Receive Date: 20121022
  Receipt Date: 20121105
  Transmission Date: 20130627
  Serious: Yes (Other)
  Sender: FDA-Public Use
  Company Number: US-PFIZER INC-2012262477

PATIENT
  Age: 71 Year
  Sex: Female
  Weight: 79.37 kg

DRUGS (5)
  1. LYRICA [Suspect]
     Indication: TRIGEMINAL NEURALGIA
     Dosage: 50 mg, 2x/day
     Route: 048
     Dates: start: 20121009, end: 20121018
  2. LYRICA [Suspect]
     Dosage: 50 mg, 3x/day
     Dates: start: 20121019
  3. LAMOTRIGINE [Suspect]
     Indication: TRIGEMINAL NEURALGIA
     Dosage: 25 mg, three or four times a day
     Dates: start: 201210, end: 201210
  4. LAMOTRIGINE [Suspect]
     Dosage: 25 mg, 2x/day
     Dates: start: 201210, end: 201210
  5. CARBAMAZEPINE [Concomitant]
     Indication: TRIGEMINAL NEURALGIA
     Dosage: 200 mg, 2x/day

REACTIONS (8)
  - Vision blurred [Recovered/Resolved]
  - Pain [Not Recovered/Not Resolved]
  - Paraesthesia [Not Recovered/Not Resolved]
  - Fatigue [Unknown]
  - Dizziness [Unknown]
  - Discomfort [Unknown]
  - Off label use [Unknown]
  - Drug ineffective for unapproved indication [Unknown]
